FAERS Safety Report 17488864 (Version 2)
Quarter: 2020Q1

REPORT INFORMATION
  Report Type: Spontaneous
  Country: US (occurrence: US)
  Receive Date: 20200303
  Receipt Date: 20200306
  Transmission Date: 20200409
  Serious: No
  Sender: FDA-Public Use
  Company Number: US-009507513-2003USA000631

PATIENT
  Sex: Female

DRUGS (2)
  1. PROVENTIL [Suspect]
     Active Substance: ALBUTEROL
     Indication: ASTHMA
  2. PROVENTIL [Suspect]
     Active Substance: ALBUTEROL
     Indication: WHEEZING
     Dosage: 2 DOSAGE FORM (2 PUFFS EVERY 6 HOURS )
     Dates: start: 202002

REACTIONS (3)
  - Poor quality device used [Unknown]
  - Product quality issue [Unknown]
  - Product dose omission [Unknown]

NARRATIVE: CASE EVENT DATE: 202002
